FAERS Safety Report 13229176 (Version 2)
Quarter: 2017Q4

REPORT INFORMATION
  Report Type: Spontaneous
  Country: CH (occurrence: CH)
  Receive Date: 20170214
  Receipt Date: 20171130
  Transmission Date: 20180320
  Serious: Yes (Hospitalization)
  Sender: FDA-Public Use
  Company Number: CH-ROCHE-1891956

PATIENT
  Sex: Female

DRUGS (4)
  1. XELODA [Suspect]
     Active Substance: CAPECITABINE
     Indication: OESOPHAGEAL ADENOCARCINOMA
     Route: 048
     Dates: start: 20160426, end: 2016
  2. HERCEPTIN [Suspect]
     Active Substance: TRASTUZUMAB
     Indication: OESOPHAGEAL ADENOCARCINOMA
     Route: 042
     Dates: start: 20160426, end: 201608
  3. PERJETA [Suspect]
     Active Substance: PERTUZUMAB
     Indication: OESOPHAGEAL ADENOCARCINOMA
     Route: 065
  4. OXALIPLATIN. [Concomitant]
     Active Substance: OXALIPLATIN
     Indication: OESOPHAGEAL ADENOCARCINOMA

REACTIONS (5)
  - Intentional product use issue [Unknown]
  - Gastrointestinal toxicity [Unknown]
  - Off label use [Unknown]
  - Intentional product misuse [Unknown]
  - Ileus paralytic [Unknown]
